FAERS Safety Report 11072800 (Version 1)
Quarter: 2015Q2

REPORT INFORMATION
  Report Type: Spontaneous
  Country: IN (occurrence: IN)
  Receive Date: 20150428
  Receipt Date: 20150428
  Transmission Date: 20150821
  Serious: Yes (Death)
  Sender: FDA-Public Use
  Company Number: IN-MERCK-1504IND022174

PATIENT
  Age: 54 Year
  Sex: Male
  Weight: 54 kg

DRUGS (1)
  1. JANUVIA [Suspect]
     Active Substance: SITAGLIPTIN PHOSPHATE
     Indication: DIABETES MELLITUS
     Dosage: 1/DAY
     Route: 048

REACTIONS (1)
  - Alcohol abuse [Fatal]

NARRATIVE: CASE EVENT DATE: 201409
